FAERS Safety Report 9478602 (Version 2)
Quarter: 2014Q1

REPORT INFORMATION
  Report Type: Spontaneous
  Country: US (occurrence: US)
  Receive Date: 20130827
  Receipt Date: 20140123
  Transmission Date: 20141002
  Serious: Yes (Hospitalization, Other)
  Sender: FDA-Public Use
  Company Number: US-UCBSA-095973

PATIENT
  Age: 40 Year
  Sex: Male
  Weight: 70.3 kg

DRUGS (1)
  1. KEPPRA [Suspect]
     Indication: CONVULSION
     Dates: start: 201302, end: 20130807

REACTIONS (7)
  - Road traffic accident [Unknown]
  - Partial seizures [Recovered/Resolved]
  - Lumbar vertebral fracture [Unknown]
  - Rib fracture [Unknown]
  - Laceration [Unknown]
  - Contusion [Unknown]
  - Irritability [Recovered/Resolved]
